FAERS Safety Report 26196224 (Version 1)
Quarter: 2025Q4

REPORT INFORMATION
  Report Type: Spontaneous
  Country: CN (occurrence: CN)
  Receive Date: 20251224
  Receipt Date: 20251224
  Transmission Date: 20260118
  Serious: Yes (Life-Threatening, Other)
  Sender: BAYER HEALTHCARE PHARMACEUTICALS INC.
  Company Number: CN-BAYER-2025A168421

PATIENT
  Age: 70 Year
  Sex: Female

DRUGS (4)
  1. ULTRAVIST [Suspect]
     Active Substance: IOPROMIDE
     Indication: Computerised tomogram abdomen
     Dosage: 30 ML, ONCE
     Route: 042
     Dates: start: 20251111, end: 20251111
  2. ULTRAVIST [Suspect]
     Active Substance: IOPROMIDE
     Indication: Computerised tomogram limb
  3. ULTRAVIST [Suspect]
     Active Substance: IOPROMIDE
     Indication: Abdominal pain upper
  4. ULTRAVIST [Suspect]
     Active Substance: IOPROMIDE
     Indication: Diabetic foot

REACTIONS (7)
  - Oxygen saturation decreased [Recovered/Resolved]
  - Loss of consciousness [None]
  - Cyanosis [None]
  - Tachypnoea [Recovering/Resolving]
  - Blood pressure diastolic increased [Recovering/Resolving]
  - Chest discomfort [None]
  - Heart rate increased [Recovered/Resolved]

NARRATIVE: CASE EVENT DATE: 20251111
